FAERS Safety Report 9651063 (Version 2)
Quarter: 2013Q4

REPORT INFORMATION
  Report Type: Spontaneous
  Country: JP (occurrence: JP)
  Receive Date: 20131029
  Receipt Date: 20131029
  Transmission Date: 20140711
  Serious: Yes (Death, Life-Threatening)
  Sender: FDA-Public Use
  Company Number: JP-SANOFI-AVENTIS-2013SA085381

PATIENT
  Age: 73 Year
  Sex: Male
  Weight: 60 kg

DRUGS (42)
  1. FLUOROURACIL [Suspect]
     Indication: COLON CANCER
     Dosage: REGIMEN 1
     Route: 040
     Dates: start: 20110412, end: 20110412
  2. FLUOROURACIL [Suspect]
     Indication: COLON CANCER
     Dosage: REGIMEN 2, ONCE IN 2 DAYS
     Route: 041
     Dates: start: 20110412, end: 20110412
  3. FLUOROURACIL [Suspect]
     Indication: COLON CANCER
     Dosage: REGIMEN 3
     Route: 040
     Dates: start: 20110510, end: 20110510
  4. FLUOROURACIL [Suspect]
     Indication: COLON CANCER
     Dosage: REGIMEN 4, ONCE IN 2 DAYS
     Route: 041
     Dates: start: 20110510, end: 20110510
  5. FLUOROURACIL [Suspect]
     Indication: COLON CANCER
     Dosage: REGIMEN 5
     Route: 040
     Dates: start: 20110628, end: 20110628
  6. FLUOROURACIL [Suspect]
     Indication: COLON CANCER
     Dosage: REGIMEN 6; ONCE IN 2 DAYS
     Route: 041
     Dates: start: 20110628, end: 20110628
  7. FLUOROURACIL [Suspect]
     Indication: COLON CANCER
     Dosage: REGIMEN 7
     Route: 040
     Dates: start: 20110719, end: 20110719
  8. FLUOROURACIL [Suspect]
     Indication: COLON CANCER
     Dosage: REGIMEN 8; ONCE IN 2 DAYS
     Route: 041
     Dates: start: 20110719, end: 20110719
  9. FLUOROURACIL [Suspect]
     Indication: COLON CANCER
     Dosage: REGIMEN 9
     Route: 040
     Dates: start: 20110816, end: 20110816
  10. FLUOROURACIL [Suspect]
     Indication: COLON CANCER
     Dosage: REGIMEN 10;ONCE IN 2 DAYS
     Route: 041
     Dates: start: 20110816, end: 20110816
  11. FLUOROURACIL [Suspect]
     Indication: COLON CANCER
     Dosage: REGIMEN 11
     Route: 040
     Dates: start: 20110927, end: 20110927
  12. FLUOROURACIL [Suspect]
     Indication: COLON CANCER
     Dosage: REGIMEN 12; ONCE IN 2 DAYS
     Route: 041
     Dates: start: 20110927, end: 20110927
  13. FLUOROURACIL [Suspect]
     Indication: COLON CANCER
     Dosage: REGIMEN 13
     Route: 040
     Dates: start: 20111011, end: 20111011
  14. FLUOROURACIL [Suspect]
     Indication: COLON CANCER
     Dosage: REGIMEN 14; ONCE IN 2 DAYS
     Route: 041
     Dates: start: 20111011, end: 20111011
  15. ELPLAT [Suspect]
     Indication: COLON CANCER
     Dosage: INFUSION SOLUTION; REGIMEN 1
     Route: 041
     Dates: start: 20110412, end: 20110412
  16. ELPLAT [Suspect]
     Indication: COLON CANCER
     Dosage: INFUSION SOLUTION ; REGIMEN 2
     Route: 041
     Dates: start: 20110510, end: 20110510
  17. ELPLAT [Suspect]
     Indication: COLON CANCER
     Dosage: INFUSION SOLUTION ; REGIMEN 3
     Route: 041
     Dates: start: 20110628, end: 20110628
  18. ELPLAT [Suspect]
     Indication: COLON CANCER
     Dosage: INFUSION SOLUTION ; REGIMEN 4
     Route: 041
     Dates: start: 20110719, end: 20110719
  19. ELPLAT [Suspect]
     Indication: COLON CANCER
     Dosage: INFUSION SOLUTION ; REGIMEN 5
     Route: 041
     Dates: start: 20110816, end: 20110816
  20. ELPLAT [Suspect]
     Indication: COLON CANCER
     Dosage: INFUSION SOLUTION ; REGIMEN 6
     Route: 041
     Dates: start: 20110927, end: 20110927
  21. ELPLAT [Suspect]
     Indication: COLON CANCER
     Dosage: INFUSION SOLUTION ; REGIMEN 7
     Route: 041
     Dates: start: 20111011, end: 20111011
  22. VECTIBIX [Suspect]
     Indication: COLON CANCER
     Dosage: REGIMEN 1
     Route: 041
     Dates: start: 20110412, end: 20110412
  23. VECTIBIX [Suspect]
     Indication: COLON CANCER
     Dosage: REGIMEN 2
     Route: 041
     Dates: start: 20110510, end: 20110510
  24. VECTIBIX [Suspect]
     Indication: COLON CANCER
     Dosage: REGIMEN 3
     Route: 041
     Dates: start: 20110628, end: 20110628
  25. VECTIBIX [Suspect]
     Indication: COLON CANCER
     Dosage: REGIMEN 4
     Route: 041
     Dates: start: 20110719, end: 20110719
  26. VECTIBIX [Suspect]
     Indication: COLON CANCER
     Dosage: REGIMEN 5
     Route: 041
     Dates: start: 20110816, end: 20110816
  27. VECTIBIX [Suspect]
     Indication: COLON CANCER
     Dosage: REGIMEN 6
     Route: 041
     Dates: start: 20110927, end: 20110927
  28. VECTIBIX [Suspect]
     Indication: COLON CANCER
     Dosage: REGIMEN 7
     Route: 041
     Dates: start: 20111011, end: 20111011
  29. CALCIUM LEVOFOLINATE [Concomitant]
     Dates: start: 20110412, end: 20110412
  30. CALCIUM LEVOFOLINATE [Concomitant]
     Dates: start: 20110628, end: 20110628
  31. CALCIUM LEVOFOLINATE [Concomitant]
     Dates: start: 20110719, end: 20110719
  32. CALCIUM LEVOFOLINATE [Concomitant]
     Dates: start: 20111011, end: 20111011
  33. CEFTRIAXONE SODIUM [Concomitant]
     Dates: start: 20111018, end: 20111026
  34. ALOXI [Concomitant]
     Dates: start: 20110412, end: 20111011
  35. CHLORPHENAMINE MALEATE [Concomitant]
     Dates: start: 20110412, end: 20111011
  36. ANTITHROMBOTIC AGENTS [Concomitant]
     Dates: start: 20111028, end: 20111104
  37. DEXART [Concomitant]
     Dates: start: 20110412, end: 20111011
  38. PAZUFLOXACIN [Concomitant]
     Dates: start: 20111018, end: 20111028
  39. METHYLPREDNISOLONE SODIUM SUCCINATE [Concomitant]
     Dates: start: 20111027, end: 20111108
  40. ENDOXAN [Concomitant]
     Dates: start: 20111029
  41. ELASPOL [Concomitant]
     Dates: start: 20111027, end: 20111108
  42. SOL-MELCORT [Concomitant]
     Dates: start: 20111018, end: 20111026

REACTIONS (4)
  - Interstitial lung disease [Fatal]
  - Disseminated intravascular coagulation [Not Recovered/Not Resolved]
  - White blood cell count decreased [Recovered/Resolved]
  - Neutrophil count decreased [Unknown]
